FAERS Safety Report 21346922 (Version 1)
Quarter: 2022Q3

REPORT INFORMATION
  Report Type: Spontaneous
  Country: US (occurrence: None)
  Receive Date: 20220916
  Receipt Date: 20220916
  Transmission Date: 20221027
  Serious: Yes (Life-Threatening, Hospitalization)
  Sender: FDA-Public Use
  Company Number: None

PATIENT
  Age: 65 Year
  Sex: Male
  Weight: 89 kg

DRUGS (1)
  1. VANCOMYCIN HYDROCHLORIDE [Suspect]
     Active Substance: VANCOMYCIN HYDROCHLORIDE
     Indication: Surgery
     Dates: start: 20220606, end: 20220606

REACTIONS (10)
  - Lethargy [None]
  - Unresponsive to stimuli [None]
  - Heart rate decreased [None]
  - Cardiac assistance device user [None]
  - Blood pressure decreased [None]
  - Shock [None]
  - Acute myocardial infarction [None]
  - Acute myocardial infarction [None]
  - Anaphylactic reaction [None]
  - Hypotension [None]

NARRATIVE: CASE EVENT DATE: 20220606
